FAERS Safety Report 5680739-0 (Version None)
Quarter: 2008Q1

REPORT INFORMATION
  Report Type: 
  Country: None (occurrence: None)
  Receive Date: 20080326
  Receipt Date: 20080228
  Transmission Date: 20080703
  Serious: No
  Sender: FDA-Public Use
  Company Number: US-BOEHRINGER INGELHEIM GMBH, GERMANY-2008-BP-03064BP

PATIENT
  Age: 88 Year
  Sex: Female

DRUGS (5)
  1. MIRAPEX [Suspect]
     Indication: RESTLESS LEGS SYNDROME
     Route: 048
     Dates: start: 20070101, end: 20070101
  2. GABAPENTIN [Concomitant]
  3. FOSAMAX [Concomitant]
  4. WARFARIN SODIUM [Concomitant]
  5. THYROID PILLS [Concomitant]

REACTIONS (1)
  - CONSTIPATION [None]
